FAERS Safety Report 5482007-9 (Version None)
Quarter: 2007Q4

REPORT INFORMATION
  Report Type: 
  Country: None (occurrence: None)
  Receive Date: 20071004
  Receipt Date: 20070919
  Transmission Date: 20080405
  Serious: Yes (Hospitalization)
  Sender: FDA-Public Use
  Company Number: 2007332047

PATIENT
  Age: 41 Year
  Sex: Female
  Weight: 81.6475 kg

DRUGS (8)
  1. SUDAFED S.A. [Suspect]
     Indication: COUGH
     Dates: start: 20050401
  2. ORTHO EVRA [Suspect]
     Indication: CONTRACEPTION
     Dosage: 3 IN 4 WEEK, TRANSDERMAL
     Route: 062
     Dates: start: 20040301
  3. DIMETAPP [Concomitant]
  4. ROBITUSSIN ^ROBBIN^ (GUAIFENESIN) [Concomitant]
  5. MIGRANAL ^NOVARTIS CONSUMER HEALTH^ (DIHYDROERGOTAMINE MESILATE) [Concomitant]
  6. PENICILLIN [Concomitant]
  7. ORAL CONTRACEPTIVE NOS (ORAL CONTRACEPTIVE NOS) [Concomitant]
  8. DEPO PROVERA (MEDOXYPROGESTERONE ACETATE) [Concomitant]

REACTIONS (7)
  - APHASIA [None]
  - CEREBRAL INFARCTION [None]
  - DIASTOLIC DYSFUNCTION [None]
  - HYPERTENSION [None]
  - LACUNAR INFARCTION [None]
  - MITRAL VALVE INCOMPETENCE [None]
  - TRICUSPID VALVE INCOMPETENCE [None]
